FAERS Safety Report 7394997-8 (Version None)
Quarter: 2011Q1

REPORT INFORMATION
  Report Type: 
  Country: None (occurrence: None)
  Receive Date: 20110331
  Receipt Date: 20110331
  Transmission Date: 20110831
  Serious: No
  Sender: FDA-Public Use
  Company Number: None

PATIENT
  Age: 67 Year
  Sex: Male

DRUGS (6)
  1. ASPIRIN [Concomitant]
  2. REVLIMID [Suspect]
     Indication: MULTIPLE MYELOMA
     Dosage: 25MG QD 21D/28D ORALLY
     Route: 048
  3. PEPCID [Suspect]
     Dosage: 20MG 2TABS QD ORALLY
     Route: 048
  4. DECADRON [Concomitant]
  5. PERCOCET [Concomitant]
  6. AMBIEN [Concomitant]

REACTIONS (1)
  - RASH GENERALISED [None]
